FAERS Safety Report 5578635-2 (Version None)
Quarter: 2007Q4

REPORT INFORMATION
  Report Type: 
  Country: None (occurrence: None)
  Receive Date: 20071228
  Receipt Date: 20071228
  Transmission Date: 20080405
  Serious: Yes (Death)
  Sender: FDA-Public Use
  Company Number: None

PATIENT
  Age: 65 Year
  Sex: Female
  Weight: 69.4003 kg

DRUGS (3)
  1. REMICADE [Suspect]
     Indication: RHEUMATOID ARTHRITIS
     Dosage: INFIXIMAB 10 X 4 MONTHLY INJECTION CHANGED TO 5 VIALS LAST 2 INJECTIONS
     Dates: start: 20011204, end: 20030512
  2. ARAVA [Concomitant]
  3. CELEBREX [Concomitant]

REACTIONS (1)
  - MALAISE [None]
